FAERS Safety Report 7793745-7 (Version None)
Quarter: 2011Q4

REPORT INFORMATION
  Report Type: 
  Country: None (occurrence: None)
  Receive Date: 20111003
  Receipt Date: 20110923
  Transmission Date: 20120403
  Serious: Yes (Hospitalization)
  Sender: FDA-Public Use
  Company Number: ZA-GILEAD-2011-0044508

PATIENT

DRUGS (1)
  1. ATRIPLA [Suspect]
     Indication: HIV INFECTION
     Dosage: UNK
     Route: 048

REACTIONS (2)
  - RENAL FAILURE [None]
  - MALAISE [None]
